FAERS Safety Report 25323101 (Version 2)
Quarter: 2025Q2

REPORT INFORMATION
  Report Type: Report from Study
  Country: US (occurrence: US)
  Receive Date: 20250516
  Receipt Date: 20250620
  Transmission Date: 20250717
  Serious: No
  Sender: SUNOVION
  Company Number: US-SUMITOMO PHARMA SWITZERLAND GMBH-2025SPA004932

PATIENT

DRUGS (25)
  1. ORGOVYX [Suspect]
     Active Substance: RELUGOLIX
     Indication: Prostate cancer
     Route: 048
  2. ORGOVYX [Suspect]
     Active Substance: RELUGOLIX
     Dosage: 120 MG, QD
     Route: 048
  3. CANNABIDIOL\HERBALS [Concomitant]
     Active Substance: CANNABIDIOL\HERBALS
     Route: 065
  4. COENZYME Q10 [Concomitant]
     Active Substance: DIETARY SUPPLEMENT\UBIDECARENONE
     Route: 065
  5. FISH OIL\OMEGA-3 FATTY ACIDS [Concomitant]
     Active Substance: FISH OIL\OMEGA-3 FATTY ACIDS
     Route: 065
  6. KEFLEX [Concomitant]
     Active Substance: CEPHALEXIN
     Route: 048
  7. KETEK [Concomitant]
     Active Substance: TELITHROMYCIN
     Route: 065
  8. LOSARTAN POTASSIUM [Concomitant]
     Active Substance: LOSARTAN POTASSIUM
     Route: 048
  9. METOPROLOL SUCCINATE [Concomitant]
     Active Substance: METOPROLOL SUCCINATE
     Route: 048
  10. MOTRIN IB [Concomitant]
     Active Substance: IBUPROFEN
     Route: 048
  11. MINERALS\VITAMINS [Concomitant]
     Active Substance: MINERALS\VITAMINS
     Route: 048
  12. Nystatin sk [Concomitant]
     Route: 048
  13. Oil of oregano [Concomitant]
     Route: 048
  14. SACCHAROMYCES CEREVISIAE [Concomitant]
     Active Substance: SACCHAROMYCES CEREVISIAE
     Route: 048
  15. HERBALS\TURMERIC [Concomitant]
     Active Substance: HERBALS\TURMERIC
     Route: 048
  16. Up4 Probiotic + Prebiotic [Concomitant]
     Route: 048
  17. VITAMIN C [Concomitant]
     Active Substance: ASCORBIC ACID
     Route: 048
  18. VITAMIN D3 [Concomitant]
     Active Substance: CHOLECALCIFEROL
     Route: 048
  19. ZINC [Concomitant]
     Active Substance: ZINC
     Route: 048
  20. ASPIRIN [Concomitant]
     Active Substance: ASPIRIN
     Route: 065
  21. Bilberry extract [Concomitant]
     Route: 065
  22. BioSil [Concomitant]
     Route: 065
  23. Biotin a [Concomitant]
     Route: 065
  24. Black seed oil [Concomitant]
     Route: 065
  25. Black walnut hulls [Concomitant]
     Route: 065

REACTIONS (2)
  - Libido decreased [Unknown]
  - Weight increased [Unknown]
